FAERS Safety Report 17886271 (Version 1)
Quarter: 2020Q2

REPORT INFORMATION
  Report Type: Spontaneous
  Country: AU (occurrence: AU)
  Receive Date: 20200611
  Receipt Date: 20200611
  Transmission Date: 20200714
  Serious: Yes (Hospitalization)
  Sender: FDA-Public Use
  Company Number: AU-ABBVIE-20K-008-3439213-00

PATIENT
  Sex: Female

DRUGS (1)
  1. DUODOPA [Suspect]
     Active Substance: CARBIDOPA\LEVODOPA
     Indication: PARKINSON^S DISEASE
     Route: 050

REACTIONS (7)
  - Fall [Unknown]
  - Gait inability [Unknown]
  - Device issue [Unknown]
  - Freezing phenomenon [Unknown]
  - Eye disorder [Unknown]
  - Balance disorder [Unknown]
  - Constipation [Unknown]

NARRATIVE: CASE EVENT DATE: 2020
